FAERS Safety Report 14698925 (Version 1)
Quarter: 2018Q1

REPORT INFORMATION
  Report Type: Spontaneous
  Country: SE (occurrence: SE)
  Receive Date: 20180330
  Receipt Date: 20180330
  Transmission Date: 20180509
  Serious: Yes (Other)
  Sender: FDA-Public Use
  Company Number: SE-009507513-1803SWE010589

PATIENT
  Age: 47 Year
  Sex: Female
  Weight: 68 kg

DRUGS (3)
  1. IVERMECTIN. [Suspect]
     Active Substance: IVERMECTIN
     Indication: ACARODERMATITIS
     Dosage: 2 DOSES SEPARATED BY ONE WEEK
     Route: 065
  2. ESDEPALLETHRINE [Suspect]
     Active Substance: S-BIOALLETHRIN
     Dosage: UNK
     Route: 061
  3. PIPERONYL BUTOXIDE [Suspect]
     Active Substance: PIPERONYL BUTOXIDE

REACTIONS (3)
  - Paraesthesia [Recovered/Resolved]
  - Muscular weakness [Recovered/Resolved]
  - Hypoaesthesia [Recovered/Resolved]
